FAERS Safety Report 14556462 (Version 1)
Quarter: 2018Q1

REPORT INFORMATION
  Report Type: Spontaneous
  Country: US (occurrence: US)
  Receive Date: 20180221
  Receipt Date: 20180221
  Transmission Date: 20180509
  Serious: No
  Sender: FDA-Public Use
  Company Number: US-SHIRE-US201803917

PATIENT

DRUGS (1)
  1. XIIDRA [Suspect]
     Active Substance: LIFITEGRAST
     Indication: DRY EYE
     Dosage: ODROP IN EACH NE EYE, AM/PM
     Route: 047
     Dates: start: 201711, end: 20180127

REACTIONS (6)
  - Vision blurred [Unknown]
  - Headache [Unknown]
  - Dry skin [Unknown]
  - Instillation site reaction [Unknown]
  - Dysgeusia [Unknown]
  - Instillation site pain [Unknown]
